FAERS Safety Report 8688919 (Version 2)
Quarter: 2013Q1

REPORT INFORMATION
  Report Type: Spontaneous
  Country: US (occurrence: US)
  Receive Date: 20120727
  Receipt Date: 20130107
  Transmission Date: 20140127
  Serious: Yes (Other)
  Sender: FDA-Public Use
  Company Number: US-ASTRAZENECA-2011SE71053

PATIENT
  Age: 58 Year
  Sex: Male

DRUGS (5)
  1. SEROQUEL [Suspect]
     Route: 048
  2. SEROQUEL [Suspect]
     Route: 048
  3. NEXIUM [Suspect]
     Route: 048
  4. SYMBICORT PMDI [Suspect]
     Dosage: 160/4.5 MCG, DAILY
     Route: 055
  5. TOPROL XL [Suspect]
     Route: 048

REACTIONS (7)
  - Cerebrovascular accident [Unknown]
  - Drug intolerance [Unknown]
  - Depression [Unknown]
  - Hypertension [Unknown]
  - Feeling abnormal [Unknown]
  - Type 2 diabetes mellitus [Unknown]
  - Drug dose omission [Unknown]
